FAERS Safety Report 7264755-3 (Version None)
Quarter: 2011Q1

REPORT INFORMATION
  Report Type: 
  Country: None (occurrence: None)
  Receive Date: 20110131
  Receipt Date: 20110119
  Transmission Date: 20110831
  Serious: Yes (Life-Threatening, Hospitalization, Disabling, Other)
  Sender: FDA-Public Use
  Company Number: US-CELGENEUS-163-21880-10112561

PATIENT
  Sex: Female

DRUGS (2)
  1. REVLIMID [Suspect]
     Route: 048
     Dates: start: 20100401
  2. REVLIMID [Suspect]
     Route: 048
     Dates: start: 20101001, end: 20101101

REACTIONS (11)
  - SEPTIC SHOCK [None]
  - ASTHENIA [None]
  - RENAL FAILURE ACUTE [None]
  - NEUTROPENIA [None]
  - GANGRENE [None]
  - GASTROENTERITIS [None]
  - ANAEMIA [None]
  - THROMBOCYTOPENIA [None]
  - ATRIAL FIBRILLATION [None]
  - CEREBROVASCULAR ACCIDENT [None]
  - DEEP VEIN THROMBOSIS [None]
